FAERS Safety Report 5383211-0 (Version None)
Quarter: 2007Q3

REPORT INFORMATION
  Report Type: 
  Country: None (occurrence: None)
  Receive Date: 20070710
  Receipt Date: 20070628
  Transmission Date: 20080115
  Serious: Yes (Other)
  Sender: FDA-Public Use
  Company Number: FR-PFIZER INC-2007054176

PATIENT
  Age: 48 Year
  Sex: Female

DRUGS (2)
  1. LYRICA [Suspect]
     Indication: NEURALGIA
  2. LEVOTHYROXINE SODIUM [Concomitant]

REACTIONS (3)
  - BLOOD THYROID STIMULATING HORMONE DECREASED [None]
  - HYSTERECTOMY [None]
  - WEIGHT INCREASED [None]
